FAERS Safety Report 6160373-9 (Version None)
Quarter: 2009Q2

REPORT INFORMATION
  Report Type: 
  Country: None (occurrence: None)
  Receive Date: 20090415
  Receipt Date: 20090415
  Transmission Date: 20091009
  Serious: Yes (Life-Threatening, Other)
  Sender: FDA-Public Use
  Company Number: None

PATIENT
  Age: 72 Year
  Sex: Male
  Weight: 72.5755 kg

DRUGS (1)
  1. CLINDANYCIN 300 MILAGRAMS [Suspect]
     Indication: GINGIVAL INFECTION
     Dosage: 300 MIL 4 TIMES A DAY DENTAL
     Route: 004
     Dates: start: 20090327, end: 20090406

REACTIONS (2)
  - ERYTHEMA [None]
  - RASH [None]
